FAERS Safety Report 8156062-1 (Version None)
Quarter: 2012Q1

REPORT INFORMATION
  Report Type: 
  Country: None (occurrence: None)
  Receive Date: 20120216
  Receipt Date: 20120203
  Transmission Date: 20120608
  Serious: Yes (Other)
  Sender: FDA-Public Use
  Company Number: PHHY2011JP95083

PATIENT
  Age: 73 Year
  Sex: Female

DRUGS (5)
  1. VISUDYNE [Suspect]
     Indication: POLYPOIDAL CHOROIDAL VASCULOPATHY
     Dates: start: 20090802, end: 20090802
  2. VISUDYNE [Suspect]
     Indication: AGE-RELATED MACULAR DEGENERATION
     Dates: start: 20090802, end: 20090802
  3. LUCENTIS [Suspect]
     Indication: AGE-RELATED MACULAR DEGENERATION
     Dosage: 0.05 ML ONCE EY
     Dates: start: 20090818, end: 20090818
  4. LUCENTIS [Suspect]
     Indication: POLYPOIDAL CHOROIDAL VASCULOPATHY
     Dosage: 0.05 ML ONCE EY
     Dates: start: 20090818, end: 20090818
  5. GATIFLOXACIN [Concomitant]

REACTIONS (3)
  - RETINAL DETACHMENT [None]
  - VISUAL ACUITY REDUCED [None]
  - CHOROIDAL DYSTROPHY [None]
